FAERS Safety Report 9383824 (Version 1)
Quarter: 2013Q3

REPORT INFORMATION
  Report Type: Spontaneous
  Country: US (occurrence: US)
  Receive Date: 20130704
  Receipt Date: 20130704
  Transmission Date: 20140515
  Serious: No
  Sender: FDA-Public Use
  Company Number: US-B.I. PHARMACEUTICALS,INC./RIDGEFIELD-2013-BI-18789BP

PATIENT
  Age: 78 Year
  Sex: Female
  Weight: 54 kg

DRUGS (4)
  1. SPIRIVA [Suspect]
     Indication: EMPHYSEMA
     Dosage: 18 MCG
     Route: 055
     Dates: start: 201212
  2. COMBIVENT [Suspect]
     Indication: EMPHYSEMA
     Dosage: STRENGTH: 18 MCG / 103 MCG; DAILY DOSE: 144 MCG/824 MCG
     Route: 055
     Dates: start: 1999
  3. ALBUTEROL [Concomitant]
     Indication: EMPHYSEMA
     Route: 055
     Dates: start: 1999
  4. ADVAIR [Concomitant]
     Indication: EMPHYSEMA
     Route: 055
     Dates: start: 1999

REACTIONS (3)
  - Dyspnoea [Recovered/Resolved]
  - Ankle fracture [Recovered/Resolved]
  - Ligament sprain [Recovered/Resolved]
